FAERS Safety Report 8937189 (Version 1)
Quarter: 2012Q4

REPORT INFORMATION
  Report Type: Spontaneous
  Country: GB (occurrence: None)
  Receive Date: 20121121
  Receipt Date: 20121121
  Transmission Date: 20130627
  Serious: Yes (Hospitalization)
  Sender: FDA-Public Use
  Company Number: GB-BANPHARM-20120352

PATIENT
  Age: 47 Year
  Sex: Male

DRUGS (2)
  1. IBUPROFEN [Suspect]
     Indication: HEADACHE
     Dosage: PRN
     Route: 048
     Dates: end: 20041219
  2. WARFARIN [Concomitant]

REACTIONS (5)
  - Chest pain [None]
  - Melaena [None]
  - Oesophagitis [None]
  - Dyspnoea [None]
  - Haemoglobin decreased [None]
